FAERS Safety Report 8889492 (Version 2)
Quarter: 2013Q1

REPORT INFORMATION
  Report Type: Spontaneous
  Country: FR (occurrence: None)
  Receive Date: 20121031
  Receipt Date: 20130213
  Transmission Date: 20140127
  Serious: Yes (Other)
  Sender: FDA-Public Use
  Company Number: 219136

PATIENT
  Age: 39 Year
  Sex: Male
  Weight: 80 kg

DRUGS (2)
  1. INNOHEP [Suspect]
     Indication: FOOT FRACTURE
     Route: 058
     Dates: start: 20120829, end: 20121015
  2. COUMADIN [Concomitant]

REACTIONS (2)
  - Thrombosis [None]
  - Drug ineffective [None]
